FAERS Safety Report 5876921-X (Version None)
Quarter: 2008Q3

REPORT INFORMATION
  Report Type: 
  Country: None (occurrence: None)
  Receive Date: 20080908
  Receipt Date: 20080827
  Transmission Date: 20090109
  Serious: Yes (Hospitalization)
  Sender: FDA-Public Use
  Company Number: 238210J08USA

PATIENT
  Age: 41 Year
  Sex: Female
  Weight: 55.3388 kg

DRUGS (2)
  1. REBIF [Suspect]
     Indication: MULTIPLE SCLEROSIS
     Dosage: NOT REPORTED, NOT REPORTED, SUBCUTANEOUS
     Route: 058
     Dates: start: 20020114, end: 20070101
  2. PAXIL [Concomitant]

REACTIONS (2)
  - HYPERSENSITIVITY [None]
  - OEDEMA PERIPHERAL [None]
